FAERS Safety Report 12601776 (Version 4)
Quarter: 2016Q4

REPORT INFORMATION
  Report Type: Report from Study
  Country: DE (occurrence: DE)
  Receive Date: 20160728
  Receipt Date: 20161221
  Transmission Date: 20170207
  Serious: Yes (Hospitalization)
  Sender: FDA-Public Use
  Company Number: DE-ROCHE-1711377

PATIENT
  Age: 69 Year
  Sex: Male
  Weight: 80 kg

DRUGS (20)
  1. ADENURIC [Concomitant]
     Active Substance: FEBUXOSTAT
     Indication: GOUT
     Route: 048
     Dates: start: 201409
  2. PALEXIA [Concomitant]
     Active Substance: TAPENTADOL HYDROCHLORIDE
     Indication: ABDOMINAL PAIN
     Route: 048
     Dates: start: 20160523, end: 20160627
  3. ATEZOLIZUMAB [Suspect]
     Active Substance: ATEZOLIZUMAB
     Indication: BLADDER TRANSITIONAL CELL CARCINOMA
     Dosage: DATE OF MOST RECENT DOSE 04/FEB/2016 PRIOR TO MACROHAEMATURIA?MOST RECENT DOSE PRIOR TO ACUTE POST R
     Route: 042
     Dates: start: 20151001
  4. FERROSANOL [Concomitant]
     Active Substance: FERROUS GLUCONATE
     Indication: ANAEMIA
     Route: 048
     Dates: start: 20160604
  5. CLOTRIMAZOLE CREME [Concomitant]
     Dosage: 1 OTHER
     Route: 062
     Dates: start: 20160303
  6. TILIDIN COMP [Concomitant]
     Active Substance: NALOXONE HYDROCHLORIDE\TILIDINE HYDROCHLORIDE
     Indication: ABDOMINAL PAIN
     Route: 048
     Dates: start: 20160301, end: 20160523
  7. LEVOFLOXACIN. [Concomitant]
     Active Substance: LEVOFLOXACIN
     Indication: URINARY TRACT INFECTION
     Route: 048
     Dates: start: 20160523, end: 20160602
  8. GABAPENTIN. [Concomitant]
     Active Substance: GABAPENTIN
     Indication: PAIN IN EXTREMITY
     Route: 048
     Dates: start: 20160108, end: 20160110
  9. IBUPROFEN. [Concomitant]
     Active Substance: IBUPROFEN
     Indication: ABDOMINAL PAIN
     Route: 048
  10. DEKRISTOL [Concomitant]
     Active Substance: CHOLECALCIFEROL
     Indication: METASTASES TO BONE
     Route: 048
     Dates: start: 20150924
  11. NOVALGIN [Concomitant]
     Active Substance: METAMIZOLE SODIUM
     Indication: PAIN IN EXTREMITY
     Route: 048
     Dates: start: 201510
  12. BATRAFEN [Concomitant]
     Indication: TINEA PEDIS
     Dosage: 1 OTHER
     Route: 062
     Dates: start: 20160303
  13. ADVANTAN [Concomitant]
     Active Substance: CORTICOSTEROID NOS
     Indication: RASH
     Dosage: 1 OTHER
     Route: 062
     Dates: start: 20160303
  14. LEVOFLOXACIN. [Concomitant]
     Active Substance: LEVOFLOXACIN
     Indication: PROPHYLAXIS
     Route: 048
     Dates: start: 20160330, end: 20160408
  15. DIFLUCAN [Concomitant]
     Active Substance: FLUCONAZOLE
     Indication: PROPHYLAXIS
     Route: 048
     Dates: start: 20160330, end: 20160411
  16. XGEVA [Concomitant]
     Active Substance: DENOSUMAB
     Indication: METASTASES TO BONE
     Route: 058
     Dates: start: 20151001
  17. MIRTAZAPIN [Concomitant]
     Active Substance: MIRTAZAPINE
     Indication: ABDOMINAL PAIN
     Route: 048
     Dates: start: 20160301, end: 20160523
  18. GABAPENTIN. [Concomitant]
     Active Substance: GABAPENTIN
     Indication: ABDOMINAL PAIN
     Route: 048
     Dates: start: 20160628
  19. PALEXIA [Concomitant]
     Active Substance: TAPENTADOL HYDROCHLORIDE
     Indication: ABDOMINAL PAIN
     Route: 048
     Dates: start: 20160628
  20. LIQUEMIN [Concomitant]
     Active Substance: HEPARIN SODIUM
     Indication: THROMBOSIS
     Route: 058
     Dates: start: 20160601

REACTIONS (4)
  - Haematuria [Recovered/Resolved]
  - Acute kidney injury [Recovered/Resolved]
  - Postrenal failure [Recovered/Resolved]
  - Toxic epidermal necrolysis [Recovered/Resolved]

NARRATIVE: CASE EVENT DATE: 20160203
